FAERS Safety Report 14343278 (Version 2)
Quarter: 2018Q1

REPORT INFORMATION
  Report Type: Spontaneous
  Country: JP (occurrence: JP)
  Receive Date: 20180102
  Receipt Date: 20180226
  Transmission Date: 20180509
  Serious: Yes (Life-Threatening, Hospitalization, Disabling)
  Sender: FDA-Public Use
  Company Number: JP-JNJFOC-20171125995

PATIENT
  Age: 84 Year
  Sex: Female
  Weight: 41.2 kg

DRUGS (4)
  1. XARELTO [Suspect]
     Active Substance: RIVAROXABAN
     Indication: DEEP VEIN THROMBOSIS
     Route: 048
     Dates: start: 20170731, end: 20170815
  2. LANSOPRAZOLE. [Concomitant]
     Active Substance: LANSOPRAZOLE
     Indication: GASTRIC ULCER
     Route: 048
     Dates: start: 20170721, end: 20170928
  3. CARBAMAZEPINE. [Suspect]
     Active Substance: CARBAMAZEPINE
     Indication: EPILEPSY
     Dosage: DOSAGE: UNKNOWN
     Route: 048
  4. XARELTO [Suspect]
     Active Substance: RIVAROXABAN
     Indication: DEEP VEIN THROMBOSIS
     Route: 048
     Dates: start: 20170816, end: 20170831

REACTIONS (8)
  - Anaemia [Recovering/Resolving]
  - Subdural haematoma [Recovered/Resolved with Sequelae]
  - Seizure [Recovered/Resolved]
  - Contusion [Unknown]
  - Epilepsy [Recovering/Resolving]
  - Cerebral infarction [Recovered/Resolved with Sequelae]
  - Fall [Unknown]
  - Muscle spasms [Recovered/Resolved with Sequelae]

NARRATIVE: CASE EVENT DATE: 2017
